FAERS Safety Report 9542717 (Version 2)
Quarter: 2013Q4

REPORT INFORMATION
  Report Type: Spontaneous
  Country: US (occurrence: US)
  Receive Date: 20130923
  Receipt Date: 20131004
  Transmission Date: 20140711
  Serious: No
  Sender: FDA-Public Use
  Company Number: US-PFIZER INC-2013270546

PATIENT
  Age: 69 Year
  Sex: Male
  Weight: 60.54 kg

DRUGS (8)
  1. DILANTIN [Suspect]
     Indication: CONVULSION
     Dosage: 100 MG, 3X/DAY
     Route: 048
  2. ZETIA [Interacting]
     Dosage: UNK
     Dates: start: 20130314, end: 20130823
  3. NORCO [Concomitant]
     Dosage: UNK
  4. PLAVIX [Concomitant]
     Dosage: UNK
  5. SODIUM CHLORIDE [Concomitant]
     Dosage: UNK
  6. TEGRETOL [Concomitant]
     Dosage: UNK
  7. ZOFRAN [Concomitant]
     Dosage: UNK
  8. VITAMIN D3 SUPPLEMENT [Concomitant]
     Dosage: UNK

REACTIONS (2)
  - Drug interaction [Unknown]
  - Anticonvulsant drug level below therapeutic [Recovered/Resolved]
